FAERS Safety Report 8483137-X (Version None)
Quarter: 2012Q3

REPORT INFORMATION
  Report Type: 
  Country: None (occurrence: None)
  Receive Date: 20120702
  Receipt Date: 20120622
  Transmission Date: 20120928
  Serious: No
  Sender: FDA-Public Use
  Company Number: US-ELI_LILLY_AND_COMPANY-US201206008420

PATIENT
  Age: 86 Year
  Sex: Male

DRUGS (1)
  1. CIALIS [Suspect]
     Indication: ERECTILE DYSFUNCTION
     Dosage: 10 MG, PRN
     Dates: start: 20120621

REACTIONS (4)
  - VISION BLURRED [None]
  - PARAESTHESIA [None]
  - DRUG INEFFECTIVE [None]
  - HYPOAESTHESIA [None]
